FAERS Safety Report 5063290-0 (Version None)
Quarter: 2006Q3

REPORT INFORMATION
  Report Type: 
  Country: None (occurrence: None)
  Receive Date: 20060724
  Receipt Date: 20060712
  Transmission Date: 20061208
  Serious: Yes (Hospitalization, Other)
  Sender: FDA-Public Use
  Company Number: 2006086287

PATIENT
  Age: 71 Year
  Sex: Male
  Weight: 88.4514 kg

DRUGS (4)
  1. LIPITOR [Suspect]
     Indication: BLOOD CHOLESTEROL INCREASED
     Dosage: 20 MG (1 IN 1 D),
     Dates: start: 19990101
  2. FUROSEMIDE [Concomitant]
  3. AMIODARONE (AMIODARONE) [Concomitant]
  4. LEVOTHROID [Concomitant]

REACTIONS (4)
  - BLOOD CHOLESTEROL INCREASED [None]
  - HEART RATE IRREGULAR [None]
  - HYPOTHYROIDISM [None]
  - POOR QUALITY DRUG ADMINISTERED [None]
